FAERS Safety Report 9645557 (Version 2)
Quarter: 2013Q4

REPORT INFORMATION
  Report Type: Spontaneous
  Country: TT (occurrence: TT)
  Receive Date: 20131025
  Receipt Date: 20131227
  Transmission Date: 20140711
  Serious: Yes (Disabling, Other)
  Sender: FDA-Public Use
  Company Number: TT-ROCHE-1294129

PATIENT
  Age: 2 Year
  Sex: Male
  Weight: 12.8 kg

DRUGS (3)
  1. TAMIFLU [Suspect]
     Indication: INFLUENZA
     Dosage: EXPIRY DATE: 12-2011 / DEC14
     Route: 048
     Dates: start: 20131012, end: 20131016
  2. TAMIFLU [Suspect]
     Indication: H1N1 INFLUENZA
  3. PARACETAMOL [Concomitant]
     Indication: PYREXIA
     Route: 048
     Dates: start: 20131011, end: 20131013

REACTIONS (4)
  - Dysphemia [Recovering/Resolving]
  - Irritability [Not Recovered/Not Resolved]
  - Pain in extremity [Recovered/Resolved]
  - Abnormal behaviour [Recovered/Resolved]
